FAERS Safety Report 5279309-8 (Version None)
Quarter: 2007Q1

REPORT INFORMATION
  Report Type: 
  Country: None (occurrence: None)
  Receive Date: 20070328
  Receipt Date: 20060511
  Transmission Date: 20070707
  Serious: No
  Sender: FDA-Public Use
  Company Number: US-AMGEN-US178600

PATIENT
  Sex: Female
  Weight: 75.4 kg

DRUGS (8)
  1. NEULASTA [Suspect]
     Indication: CHEMOTHERAPY
     Route: 058
     Dates: start: 20060222, end: 20060222
  2. EMEND [Concomitant]
     Route: 065
     Dates: start: 20060221
  3. PREDNISONE [Concomitant]
     Route: 065
     Dates: start: 20060221
  4. VICODIN [Concomitant]
     Route: 048
  5. ADRIAMYCIN PFS [Concomitant]
     Route: 042
     Dates: start: 20060221
  6. CYTOXAN [Concomitant]
     Route: 042
     Dates: start: 20060221
  7. ALOXI [Concomitant]
     Route: 042
     Dates: start: 20060221
  8. HEXADROL [Concomitant]
     Route: 042
     Dates: start: 20060221

REACTIONS (5)
  - CHEST DISCOMFORT [None]
  - CHEST PAIN [None]
  - PRURITUS [None]
  - THROAT TIGHTNESS [None]
  - URTICARIA [None]
